FAERS Safety Report 8460288-7 (Version None)
Quarter: 2012Q2

REPORT INFORMATION
  Report Type: 
  Country: None (occurrence: None)
  Receive Date: 20120622
  Receipt Date: 20120608
  Transmission Date: 20120825
  Serious: Yes (Hospitalization)
  Sender: FDA-Public Use
  Company Number: US-ACTELION-A-US2012-66620

PATIENT

DRUGS (3)
  1. ADCIRCA [Concomitant]
  2. TRACLEER [Suspect]
     Indication: PULMONARY ARTERIAL HYPERTENSION
     Dosage: UNK
     Route: 048
     Dates: start: 20100520
  3. PLAVIX [Concomitant]

REACTIONS (5)
  - INSOMNIA [None]
  - CARDIO-RESPIRATORY ARREST [None]
  - CYANOSIS [None]
  - CHEST DISCOMFORT [None]
  - NAIL DISCOLOURATION [None]
